FAERS Safety Report 15353377 (Version 1)
Quarter: 2018Q3

REPORT INFORMATION
  Report Type: Spontaneous
  Country: CA (occurrence: CA)
  Receive Date: 20180905
  Receipt Date: 20180905
  Transmission Date: 20181010
  Serious: Yes (Death, Hospitalization)
  Sender: FDA-Public Use
  Company Number: CA-PFIZER INC-2016491779

PATIENT
  Age: 39 Year
  Sex: Female

DRUGS (14)
  1. NEXIUM [Concomitant]
     Active Substance: ESOMEPRAZOLE MAGNESIUM
     Dosage: 20 MG, 1X/DAY
     Route: 048
  2. EMLA [Concomitant]
     Active Substance: LIDOCAINE\PRILOCAINE
     Dosage: 2.5+ 2.5% BEFORE SLEEP
     Route: 061
  3. STATEX [Concomitant]
     Dosage: 5 MG, 1/2 TABLET EVERY 4 HOURS PM
  4. HYDROXYZINE [Concomitant]
     Active Substance: HYDROXYZINE HYDROCHLORIDE
     Dosage: 10 MG, 2X/DAY, AS NEEDED
     Route: 048
  5. IBRANCE [Suspect]
     Active Substance: PALBOCICLIB
     Indication: BREAST CANCER METASTATIC
     Dosage: 125 MG, DAILY FOR 21 DAYS FOLLOWED BY 7 DAYS OFF
     Route: 048
     Dates: start: 20161102
  6. DENOSUMAB [Concomitant]
     Active Substance: DENOSUMAB
     Dosage: 120 MG/ 1.7  ML INJ EVERY 3 MONTHS
  7. ZOLADEX [Concomitant]
     Active Substance: GOSERELIN ACETATE
     Dosage: 3 MG, EVERY 1 MONTH
     Route: 058
  8. METONIA [Concomitant]
     Active Substance: METOCLOPRAMIDE
     Dosage: 5 MG, 2X/DAY
     Route: 048
  9. MIRTAZAPINE. [Concomitant]
     Active Substance: MIRTAZAPINE
  10. NAPROXEN. [Concomitant]
     Active Substance: NAPROXEN
     Dosage: 250 MG, 2X/DAY
     Route: 048
  11. ONDANSETRON [Concomitant]
     Active Substance: ONDANSETRON
  12. EPREX [Concomitant]
     Active Substance: ERYTHROPOIETIN
  13. LETROZOLE. [Concomitant]
     Active Substance: LETROZOLE
     Dosage: 2.5 MG, 1X/DAY
     Route: 048
  14. LORAZEPAM. [Concomitant]
     Active Substance: LORAZEPAM

REACTIONS (12)
  - Neoplasm progression [Unknown]
  - Product use issue [Unknown]
  - Paraesthesia [Unknown]
  - Haemoglobin decreased [Unknown]
  - Death [Fatal]
  - Epistaxis [Not Recovered/Not Resolved]
  - Neutrophil count decreased [Unknown]
  - Abdominal pain upper [Unknown]
  - Haemorrhoids [Not Recovered/Not Resolved]
  - Influenza [Unknown]
  - Hypoaesthesia [Unknown]
  - Platelet count decreased [Unknown]
